FAERS Safety Report 11715578 (Version 2)
Quarter: 2016Q4

REPORT INFORMATION
  Report Type: Report from Study
  Country: FR (occurrence: FR)
  Receive Date: 20151109
  Receipt Date: 20161212
  Transmission Date: 20170206
  Serious: Yes (Other)
  Sender: FDA-Public Use
  Company Number: FR-JNJFOC-20150905362

PATIENT

DRUGS (18)
  1. RISPERDAL [Suspect]
     Active Substance: RISPERIDONE
     Indication: AFFECTIVE DISORDER
     Dosage: ONCE EVENING
     Route: 065
  2. RISPERDAL [Suspect]
     Active Substance: RISPERIDONE
     Indication: PSYCHOTIC DISORDER
     Dosage: ONCE EVENING
     Route: 065
  3. ABILIFY [Suspect]
     Active Substance: ARIPIPRAZOLE
     Indication: PRODUCT USED FOR UNKNOWN INDICATION
     Route: 065
  4. SEROPLEX [Concomitant]
     Active Substance: ESCITALOPRAM OXALATE
     Route: 065
  5. LEXOMIL [Concomitant]
     Active Substance: BROMAZEPAM
     Route: 065
  6. RISPERDAL [Suspect]
     Active Substance: RISPERIDONE
     Indication: AFFECTIVE DISORDER
     Route: 065
  7. PARKINANE [Concomitant]
     Active Substance: TRIHEXYPHENIDYL HYDROCHLORIDE
     Route: 065
  8. TERCIAN [Concomitant]
     Active Substance: CYAMEMAZINE
     Route: 065
  9. HALDOL [Suspect]
     Active Substance: HALOPERIDOL
     Indication: PRODUCT USED FOR UNKNOWN INDICATION
     Route: 065
  10. RISPERDAL [Suspect]
     Active Substance: RISPERIDONE
     Indication: AFFECTIVE DISORDER
     Route: 065
  11. SULFARLEM [Concomitant]
     Active Substance: ANETHOLTRITHION
     Route: 065
  12. LOXAPAC [Concomitant]
     Active Substance: LOXAPINE SUCCINATE
     Route: 065
  13. RISPERDAL [Suspect]
     Active Substance: RISPERIDONE
     Indication: AFFECTIVE DISORDER
     Route: 065
  14. RISPERDAL [Suspect]
     Active Substance: RISPERIDONE
     Indication: PSYCHOTIC DISORDER
     Route: 065
  15. RISPERDAL [Suspect]
     Active Substance: RISPERIDONE
     Indication: PSYCHOTIC DISORDER
     Route: 065
  16. RISPERDAL [Suspect]
     Active Substance: RISPERIDONE
     Indication: PSYCHOTIC DISORDER
     Route: 065
  17. XANAX [Concomitant]
     Active Substance: ALPRAZOLAM
     Route: 065
  18. THERALENE [Concomitant]
     Active Substance: TRIMEPRAZINE
     Route: 065

REACTIONS (22)
  - Loss of consciousness [Unknown]
  - Depression [Unknown]
  - Disturbance in attention [Unknown]
  - Apathy [Unknown]
  - Weight increased [Unknown]
  - Dyskinesia [Unknown]
  - Unevaluable event [Unknown]
  - Abdominal pain upper [Unknown]
  - Hallucination, visual [Unknown]
  - Diarrhoea [Unknown]
  - Anger [Unknown]
  - Hallucination, auditory [Unknown]
  - Suicide attempt [Unknown]
  - Adverse event [Unknown]
  - Amnesia [Unknown]
  - Mood altered [Unknown]
  - Delusion [Unknown]
  - Fatigue [Unknown]
  - Impulse-control disorder [Unknown]
  - Drug ineffective [Unknown]
  - Autism [Unknown]
  - Aggression [Unknown]
